FAERS Safety Report 10216469 (Version 2)
Quarter: 2014Q2

REPORT INFORMATION
  Report Type: Report from Study
  Country: CN (occurrence: CN)
  Receive Date: 20140604
  Receipt Date: 20140604
  Transmission Date: 20141212
  Serious: Yes (Hospitalization)
  Sender: FDA-Public Use
  Company Number: CN-ROCHE-1260711

PATIENT
  Sex: Male
  Weight: 78 kg

DRUGS (3)
  1. AVASTIN [Suspect]
     Indication: COLON CANCER
     Route: 042
     Dates: start: 20130708
  2. AVASTIN [Suspect]
     Indication: METASTASES TO LIVER
     Route: 042
     Dates: start: 20130709
  3. XELODA [Suspect]
     Indication: COLON CANCER
     Route: 048

REACTIONS (10)
  - Gastrointestinal mucosal disorder [Unknown]
  - Pain [Unknown]
  - Vomiting [Unknown]
  - Dysphonia [Recovering/Resolving]
  - Decreased appetite [Unknown]
  - Skin discolouration [Unknown]
  - Hypoaesthesia [Unknown]
  - Hypoaesthesia [Unknown]
  - Skin discolouration [Unknown]
  - Skin discolouration [Unknown]
